FAERS Safety Report 5844857-6 (Version None)
Quarter: 2008Q3

REPORT INFORMATION
  Report Type: 
  Country: None (occurrence: None)
  Receive Date: 20080812
  Receipt Date: 20080801
  Transmission Date: 20090109
  Serious: Yes (Other)
  Sender: FDA-Public Use
  Company Number: 2008BI017788

PATIENT
  Sex: Female

DRUGS (1)
  1. AVONEX [Suspect]
     Indication: MULTIPLE SCLEROSIS
     Dosage: 30 UG;QW;IM
     Route: 030
     Dates: start: 20071221

REACTIONS (5)
  - DEEP VEIN THROMBOSIS [None]
  - INJECTION SITE HAEMORRHAGE [None]
  - VASCULAR INJURY [None]
  - VEIN DISORDER [None]
  - WRONG TECHNIQUE IN DRUG USAGE PROCESS [None]
